FAERS Safety Report 6623927 (Version 2)
Quarter: 2025Q2

REPORT INFORMATION
  Report Type: Spontaneous
  Country: ES (occurrence: ES)
  Receive Date: 20080424
  Receipt Date: 20250610
  Transmission Date: 20250717
  Serious: Yes (Other)
  Sender: MYLAN
  Company Number: None

PATIENT
  Age: 55 Year
  Sex: Female

DRUGS (2)
  1. LYRICA [Interacting]
     Active Substance: PREGABALIN
     Indication: Product used for unknown indication
  2. ACECLOFENAC [Interacting]
     Active Substance: ACECLOFENAC
     Indication: Product used for unknown indication

REACTIONS (2)
  - Hypertensive crisis [Recovered/Resolved]
  - Drug interaction [Recovered/Resolved]

NARRATIVE: CASE EVENT DATE: 20080101
